FAERS Safety Report 10234926 (Version 2)
Quarter: 2014Q2

REPORT INFORMATION
  Report Type: Spontaneous
  Country: JP (occurrence: JP)
  Receive Date: 20140613
  Receipt Date: 20140618
  Transmission Date: 20141212
  Serious: Yes (Death, Other)
  Sender: FDA-Public Use
  Company Number: JP-ROCHE-1415592

PATIENT
  Age: 63 Year
  Sex: Female

DRUGS (13)
  1. AVASTIN [Suspect]
     Indication: COLON CANCER
     Route: 041
     Dates: start: 201107, end: 2011
  2. AVASTIN [Suspect]
     Indication: COLON CANCER
     Route: 041
     Dates: start: 2011, end: 2011
  3. ELPLAT [Suspect]
     Indication: COLON CANCER
     Route: 041
     Dates: start: 201107, end: 2011
  4. ELPLAT [Suspect]
     Indication: COLON CANCER
     Route: 041
     Dates: start: 2011, end: 2011
  5. LEVOFOLINATE [Suspect]
     Indication: COLON CANCER
     Route: 041
     Dates: start: 201107, end: 2011
  6. LEVOFOLINATE [Suspect]
     Indication: COLON CANCER
     Route: 041
     Dates: start: 2011, end: 2012
  7. 5-FU [Suspect]
     Indication: COLON CANCER
     Route: 040
     Dates: start: 201107, end: 2011
  8. 5-FU [Suspect]
     Indication: COLON CANCER
     Route: 041
     Dates: start: 201107, end: 2011
  9. 5-FU [Suspect]
     Indication: COLON CANCER
     Route: 040
     Dates: start: 2011, end: 2011
  10. 5-FU [Suspect]
     Indication: COLON CANCER
     Route: 041
     Dates: start: 2011, end: 2011
  11. 5-FU [Suspect]
     Indication: COLON CANCER
     Route: 040
     Dates: start: 2011, end: 2012
  12. 5-FU [Suspect]
     Indication: COLON CANCER
     Route: 041
     Dates: start: 2011, end: 2012
  13. IRINOTECAN HYDROCHLORIDE [Concomitant]
     Indication: COLON CANCER
     Route: 041
     Dates: start: 2011

REACTIONS (4)
  - Disease progression [Fatal]
  - Neutropenia [Unknown]
  - Lymphangiosis carcinomatosa [Unknown]
  - Femoral neck fracture [Unknown]
